FAERS Safety Report 16036754 (Version 1)
Quarter: 2019Q1

REPORT INFORMATION
  Report Type: Spontaneous
  Country: US (occurrence: US)
  Receive Date: 20190305
  Receipt Date: 20190305
  Transmission Date: 20190418
  Serious: No
  Sender: FDA-Public Use
  Company Number: US-IMPAX LABORATORIES, LLC-2018-IPXL-02964

PATIENT
  Age: 59 Year
  Sex: Male
  Weight: 63 kg

DRUGS (4)
  1. TROSPIUM [Concomitant]
     Active Substance: TROSPIUM
     Indication: BLADDER DISORDER
     Dosage: 20 MG, QD
     Route: 048
     Dates: start: 2017
  2. RYTARY [Suspect]
     Active Substance: CARBIDOPA\LEVODOPA
     Dosage: 48.75/195 MG, 2 CAPSULES THREE TIMES A DAY, PLUS 3 CAPSULES TWICE A DAY AND 1 CAPSULE AT BEDTIME
     Route: 048
     Dates: start: 2018, end: 20180905
  3. RYTARY [Suspect]
     Active Substance: CARBIDOPA\LEVODOPA
     Indication: PARKINSON^S DISEASE
     Dosage: 48.75/195 MG, UNK
     Route: 048
     Dates: start: 201805, end: 2018
  4. FENOFIBRATE. [Concomitant]
     Active Substance: FENOFIBRATE
     Indication: BLOOD TRIGLYCERIDES INCREASED
     Dosage: 160 MG, QD
     Route: 048
     Dates: start: 2011

REACTIONS (6)
  - On and off phenomenon [Recovered/Resolved]
  - Prescribed overdose [Unknown]
  - Mood swings [Recovered/Resolved]
  - Tremor [Recovered/Resolved]
  - Impulse-control disorder [Recovered/Resolved]
  - Dyskinesia [Recovered/Resolved]

NARRATIVE: CASE EVENT DATE: 201805
